FAERS Safety Report 5864445-5 (Version None)
Quarter: 2008Q3

REPORT INFORMATION
  Report Type: 
  Country: None (occurrence: None)
  Receive Date: 20080829
  Receipt Date: 20080826
  Transmission Date: 20090109
  Serious: Yes (Death)
  Sender: FDA-Public Use
  Company Number: US-RB-003547-08

PATIENT
  Sex: Male

DRUGS (6)
  1. SUBOXONE [Suspect]
     Route: 060
     Dates: start: 20061103, end: 20070101
  2. SUBOXONE [Suspect]
     Route: 060
     Dates: start: 20070101, end: 20080801
  3. LIQUOR [Suspect]
     Indication: INTENTIONAL OVERDOSE
     Dosage: AMOUNT CONSUMED UNKNOWN
     Route: 048
     Dates: end: 20080801
  4. MORPHINE [Suspect]
     Indication: INTENTIONAL OVERDOSE
     Dosage: DOSAGE UNKNOWN
     Route: 065
     Dates: end: 20080801
  5. OXYCODONE HCL [Suspect]
     Indication: INTENTIONAL OVERDOSE
     Dosage: DOSAGE UNKNOWN
     Route: 065
     Dates: end: 20080801
  6. METHADONE HCL [Suspect]
     Indication: INTENTIONAL OVERDOSE
     Dosage: DOSAGE TAKEN UNKNOWN
     Route: 065
     Dates: end: 20080801

REACTIONS (2)
  - COMPLETED SUICIDE [None]
  - INTENTIONAL OVERDOSE [None]
